FAERS Safety Report 4384013-4 (Version None)
Quarter: 2004Q2

REPORT INFORMATION
  Report Type: 
  Country: None (occurrence: None)
  Receive Date: 20040621
  Receipt Date: 20040607
  Transmission Date: 20050107
  Serious: Yes (Life-Threatening, Hospitalization)
  Sender: FDA-Public Use
  Company Number: PERI00204001942

PATIENT
  Age: 72 Year
  Sex: 0
  Weight: 132 kg

DRUGS (10)
  1. PERINDOPRIL (PERINDOPRIL) [Suspect]
     Indication: ILL-DEFINED DISORDER
     Dosage: 4 MG QD PO
     Route: 048
     Dates: start: 20020801
  2. DIAFORMIN (METFORMIN HYDROCHLORIDE) [Concomitant]
  3. ISOPTIN [Concomitant]
  4. KARVEA (IRBESARTAN) [Concomitant]
  5. LIPITOR [Concomitant]
  6. ASPIRIN [Concomitant]
  7. IBELEX (CEFALEXIN) [Concomitant]
  8. MELZINE (THIORIDAZINE HYDROCHLORIDE) [Concomitant]
  9. ALPHAPRESS (HYDRALAZINE HYDROCHLORIDE) [Concomitant]
  10. PROGOUT (ALLOPURINOL) [Concomitant]

REACTIONS (3)
  - HYPERKALAEMIA [None]
  - METABOLIC ACIDOSIS [None]
  - RENAL FAILURE ACUTE [None]
